FAERS Safety Report 22280110 (Version 1)
Quarter: 2023Q2

REPORT INFORMATION
  Report Type: Report from Study
  Country: US (occurrence: US)
  Receive Date: 20230503
  Receipt Date: 20230503
  Transmission Date: 20230722
  Serious: Yes (Other)
  Sender: FDA-Public Use
  Company Number: US-AMGEN-USACT2023074283

PATIENT
  Age: 38 Year
  Sex: Male
  Weight: 148.2 kg

DRUGS (2)
  1. TALIMOGENE LAHERPAREPVEC [Suspect]
     Active Substance: TALIMOGENE LAHERPAREPVEC
     Indication: Neoplasm
     Dosage: UNK
     Route: 036
     Dates: start: 20230201
  2. TALIMOGENE LAHERPAREPVEC [Suspect]
     Active Substance: TALIMOGENE LAHERPAREPVEC
     Indication: Leiomyosarcoma

REACTIONS (2)
  - Infection [Unknown]
  - Infestation [Unknown]

NARRATIVE: CASE EVENT DATE: 20230320
